FAERS Safety Report 9807357 (Version 3)
Quarter: 2014Q1

REPORT INFORMATION
  Report Type: Report from Study
  Country: BR (occurrence: BR)
  Receive Date: 20140110
  Receipt Date: 20140115
  Transmission Date: 20141002
  Serious: Yes (Hospitalization, Other)
  Sender: FDA-Public Use
  Company Number: BR-US-EMD SERONO, INC.-7235698

PATIENT
  Sex: Female

DRUGS (4)
  1. REBIF [Suspect]
     Indication: PRIMARY PROGRESSIVE MULTIPLE SCLEROSIS
     Dates: start: 20101025
  2. SERTRALINE [Concomitant]
     Indication: PRODUCT USED FOR UNKNOWN INDICATION
  3. CARBAMAZEPINE [Concomitant]
     Indication: PRODUCT USED FOR UNKNOWN INDICATION
  4. VITAMIN D                          /00107901/ [Concomitant]
     Indication: PRODUCT USED FOR UNKNOWN INDICATION

REACTIONS (7)
  - Suicidal ideation [Unknown]
  - Oral pain [Recovering/Resolving]
  - Vision blurred [Not Recovered/Not Resolved]
  - Balance disorder [Not Recovered/Not Resolved]
  - Fall [Unknown]
  - Confusional state [Unknown]
  - Off label use [Unknown]
